FAERS Safety Report 12413956 (Version 7)
Quarter: 2016Q3

REPORT INFORMATION
  Report Type: Report from Study
  Country: CN (occurrence: CN)
  Receive Date: 20160527
  Receipt Date: 20160926
  Transmission Date: 20161109
  Serious: Yes (Life-Threatening, Hospitalization)
  Sender: FDA-Public Use
  Company Number: CN-UNITED THERAPEUTICS-UNT-2016-008310

PATIENT
  Age: 28 Year
  Sex: Female
  Weight: 45.5 kg

DRUGS (9)
  1. UT-15C SR [Suspect]
     Active Substance: TREPROSTINIL DIOLAMINE
     Dosage: 25.5 MG, TOTAL DAILY DOSE (TOTAL MORNING DOSE)
     Route: 048
     Dates: start: 20160522, end: 20160522
  2. FUROSEMIDE. [Concomitant]
     Active Substance: FUROSEMIDE
     Indication: OEDEMA
     Dosage: 20 MG, TOTAL DAILY DOSE
     Dates: start: 20160114
  3. SILDENAFIL. [Concomitant]
     Active Substance: SILDENAFIL
     Indication: PULMONARY ARTERIAL HYPERTENSION
     Dosage: 60 MG, TOTAL DAILY DOSE
     Dates: start: 20150301, end: 20160521
  4. FUROSEMIDE. [Concomitant]
     Active Substance: FUROSEMIDE
     Indication: CARDIAC FAILURE
  5. SPIRONOLACTONE. [Concomitant]
     Active Substance: SPIRONOLACTONE
     Indication: CARDIAC FAILURE
  6. DIGOXIN. [Concomitant]
     Active Substance: DIGOXIN
     Indication: CARDIAC FAILURE
     Dosage: 0.125 MG, TOTAL DAILY DOSE
     Dates: start: 20160108
  7. SPIRONOLACTONE. [Concomitant]
     Active Substance: SPIRONOLACTONE
     Indication: OEDEMA
     Dosage: 20 MG, TOTAL DAILY DOSE
     Dates: start: 20160108
  8. UT-15C SR [Suspect]
     Active Substance: TREPROSTINIL DIOLAMINE
     Indication: PULMONARY ARTERIAL HYPERTENSION
     Dosage: 3 MG, TID
     Route: 048
     Dates: start: 20160510, end: 20160521
  9. UT-15C SR [Suspect]
     Active Substance: TREPROSTINIL DIOLAMINE
     Dosage: UNK
     Dates: start: 20160119

REACTIONS (17)
  - Metabolic acidosis [Recovered/Resolved]
  - Hypokalaemia [Recovered/Resolved]
  - Cardiac failure [Recovered/Resolved]
  - Erythropenia [Recovered/Resolved]
  - Peritonitis [Recovered/Resolved]
  - Hypotension [Recovered/Resolved]
  - Acute kidney injury [Recovered/Resolved]
  - Septic shock [Recovered/Resolved]
  - Vomiting [Recovered/Resolved]
  - Oedema [Recovered/Resolved with Sequelae]
  - Multiple organ dysfunction syndrome [Recovered/Resolved]
  - Intentional overdose [Recovered/Resolved]
  - Loss of consciousness [Recovered/Resolved]
  - Liver injury [Recovered/Resolved]
  - Muscle atrophy [Recovered/Resolved]
  - Respiratory failure [Recovered/Resolved with Sequelae]
  - Thrombocytopenia [Recovered/Resolved]

NARRATIVE: CASE EVENT DATE: 20160522
